FAERS Safety Report 4510827-3 (Version None)
Quarter: 2004Q4

REPORT INFORMATION
  Report Type: 
  Country: None (occurrence: None)
  Receive Date: 20041124
  Receipt Date: 20041007
  Transmission Date: 20050328
  Serious: Yes (Other)
  Sender: FDA-Public Use
  Company Number: US-MERCK-0410USA01218

PATIENT
  Age: 64 Year
  Sex: Female

DRUGS (6)
  1. VIOXX [Suspect]
     Indication: OSTEOARTHRITIS
     Route: 048
     Dates: start: 20040728, end: 20040901
  2. VIOXX [Suspect]
     Route: 048
     Dates: start: 19990801, end: 20001001
  3. VIOXX [Suspect]
     Route: 048
     Dates: start: 20010101, end: 20010701
  4. CARTIA (ASPIRIN) [Concomitant]
     Route: 065
  5. ISOSORBIDE [Concomitant]
     Route: 065
  6. LORATADINE [Concomitant]
     Route: 065

REACTIONS (14)
  - ABDOMINAL PAIN [None]
  - DRUG EFFECT DECREASED [None]
  - FAECES DISCOLOURED [None]
  - FATIGUE [None]
  - FUNDOPLICATION [None]
  - GALLBLADDER DISORDER [None]
  - GASTRITIS [None]
  - HELICOBACTER PYLORI IDENTIFICATION TEST POSITIVE [None]
  - HOARSENESS [None]
  - MENTAL STATUS CHANGES [None]
  - NECK PAIN [None]
  - OEDEMA PERIPHERAL [None]
  - OESOPHAGEAL STENOSIS [None]
  - THERAPEUTIC RESPONSE DECREASED [None]
